FAERS Safety Report 18657193 (Version 1)
Quarter: 2020Q4

REPORT INFORMATION
  Report Type: Spontaneous
  Country: GB (occurrence: GB)
  Receive Date: 20201223
  Receipt Date: 20201223
  Transmission Date: 20210114
  Serious: Yes (Hospitalization)
  Sender: FDA-Public Use
  Company Number: GB-TEVA-2020-GB-1862015

PATIENT
  Age: 68 Year
  Sex: Female
  Weight: 60.77 kg

DRUGS (5)
  1. FULTIUM-D3 [Concomitant]
     Active Substance: CHOLECALCIFEROL
  2. DEXAMETHASONE. [Concomitant]
     Active Substance: DEXAMETHASONE
     Dosage: 1 GTT
  3. VITAMIN B12 [Concomitant]
     Active Substance: CYANOCOBALAMIN
     Dosage: 4/5 WEEKLY
  4. RISEDRONIC ACID [Suspect]
     Active Substance: RISEDRONIC ACID
     Indication: OSTEOPOROSIS
     Dosage: 35 MG
     Route: 048
     Dates: start: 20160901, end: 20201001
  5. THYROXINE [Concomitant]
     Active Substance: LEVOTHYROXINE

REACTIONS (6)
  - Cholecystitis [Unknown]
  - Diarrhoea [Unknown]
  - Cholelithiasis [Unknown]
  - Frequent bowel movements [Unknown]
  - Abdominal pain lower [Not Recovered/Not Resolved]
  - C-reactive protein increased [Unknown]

NARRATIVE: CASE EVENT DATE: 20180801
